FAERS Safety Report 4688671-6 (Version None)
Quarter: 2005Q2

REPORT INFORMATION
  Report Type: 
  Country: None (occurrence: None)
  Receive Date: 20050613
  Receipt Date: 20050603
  Transmission Date: 20051028
  Serious: Yes (Other)
  Sender: FDA-Public Use
  Company Number: PT-AMGEN-UK137119

PATIENT
  Sex: Female
  Weight: 58 kg

DRUGS (2)
  1. NEULASTA [Suspect]
     Indication: AGRANULOCYTOSIS
     Route: 058
     Dates: start: 20040321, end: 20050522
  2. ACETAMINOPHEN [Concomitant]
     Route: 048

REACTIONS (3)
  - ARTHRALGIA [None]
  - THROMBOCYTOPENIA [None]
  - VASCULITIS [None]
